FAERS Safety Report 21784194 (Version 1)
Quarter: 2022Q4

REPORT INFORMATION
  Report Type: Spontaneous
  Country: US (occurrence: None)
  Receive Date: 20221226
  Receipt Date: 20221226
  Transmission Date: 20230113
  Serious: Yes (Disabling)
  Sender: FDA-Public Use
  Company Number: None

PATIENT
  Age: 59 Year
  Sex: Female
  Weight: 117.45 kg

DRUGS (23)
  1. CLOBETASOL PROPIONATE [Suspect]
     Active Substance: CLOBETASOL PROPIONATE
     Indication: Skin disorder
     Dosage: OTHER QUANTITY : 15 OUNCE(S);?FREQUENCY : TWICE A DAY;?
     Route: 061
     Dates: start: 20221031, end: 20221225
  2. CLOBETASOL PROPIONATE [Suspect]
     Active Substance: CLOBETASOL PROPIONATE
     Indication: Skin disorder
     Dosage: OTHER QUANTITY : 30 OUNCE(S);?FREQUENCY : TWICE A DAY;?
     Route: 061
     Dates: start: 20221030, end: 20221225
  3. GABAPENTIN [Concomitant]
     Active Substance: GABAPENTIN
  4. LISINOPRIL [Concomitant]
     Active Substance: LISINOPRIL
  5. ATENOLOL [Concomitant]
     Active Substance: ATENOLOL
  6. busiprone [Concomitant]
  7. MELOXICAM [Concomitant]
     Active Substance: MELOXICAM
  8. CALCIUM [Concomitant]
     Active Substance: CALCIUM
  9. MAGNESIUM [Concomitant]
     Active Substance: MAGNESIUM
  10. ZINC [Concomitant]
     Active Substance: ZINC
  11. women^s multi (b1, A, B2, B6, B12, C, D, Acai, Biotin, Cranberry, Foli [Concomitant]
  12. hair, skin and nails (hyaluronic acid+rosehips+vitamin c) [Concomitant]
  13. natural Resveratol [Concomitant]
  14. COLLAGEN [Concomitant]
     Active Substance: COLLAGEN
  15. vision formula with lutein [Concomitant]
  16. gaba calm [Concomitant]
  17. VITAMIN D3 [Concomitant]
     Active Substance: CHOLECALCIFEROL
  18. TYLENOL [Concomitant]
     Active Substance: ACETAMINOPHEN
  19. FLUTICASONE PROPIONATE [Concomitant]
     Active Substance: FLUTICASONE PROPIONATE
  20. Genexa sleepology [Concomitant]
  21. Theraworx for heel Spurs [Concomitant]
  22. GOLD BOND [Concomitant]
  23. DOVE [Concomitant]
     Active Substance: ALCOHOL

REACTIONS (4)
  - Application site rash [None]
  - Application site erythema [None]
  - Application site irritation [None]
  - Application site pain [None]

NARRATIVE: CASE EVENT DATE: 20221225
